FAERS Safety Report 10815053 (Version 1)
Quarter: 2015Q1

REPORT INFORMATION
  Report Type: Spontaneous
  Country: FR (occurrence: FR)
  Receive Date: 20150218
  Receipt Date: 20150218
  Transmission Date: 20150721
  Serious: Yes (Other)
  Sender: FDA-Public Use
  Company Number: FR-PFIZER INC-2015054866

PATIENT
  Age: 88 Year
  Sex: Female

DRUGS (9)
  1. AMLODIPINE [Concomitant]
     Active Substance: AMLODIPINE BESYLATE
  2. VESICARE [Concomitant]
     Active Substance: SOLIFENACIN SUCCINATE
  3. DOLIPRANE [Concomitant]
     Active Substance: ACETAMINOPHEN
     Dosage: UNK, AS NEEDED
  4. LEVOTHYROX [Concomitant]
     Active Substance: LEVOTHYROXINE
  5. KARDEGIC [Concomitant]
     Active Substance: ASPIRIN LYSINE
  6. FOSFOMYCIN [Concomitant]
     Active Substance: FOSFOMYCIN
  7. TAHOR [Concomitant]
     Active Substance: ATORVASTATIN CALCIUM
  8. PANTOPRAZOLE [Concomitant]
     Active Substance: PANTOPRAZOLE SODIUM
  9. LYRICA [Suspect]
     Active Substance: PREGABALIN
     Indication: FRACTURE PAIN
     Dosage: UNK
     Route: 048
     Dates: start: 20141126, end: 20141129

REACTIONS (4)
  - Excoriation [Recovering/Resolving]
  - Erythema [Recovering/Resolving]
  - Pruritus [Recovering/Resolving]
  - Rash generalised [Recovering/Resolving]

NARRATIVE: CASE EVENT DATE: 20141127
